FAERS Safety Report 9277541 (Version 5)
Quarter: 2015Q3

REPORT INFORMATION
  Report Type: Spontaneous
  Country: US (occurrence: US)
  Receive Date: 20130508
  Receipt Date: 20150924
  Transmission Date: 20151125
  Serious: Yes (Life-Threatening, Other)
  Sender: FDA-Public Use
  Company Number: US-ELI_LILLY_AND_COMPANY-US201304008972

PATIENT
  Sex: Female

DRUGS (5)
  1. CYMBALTA [Suspect]
     Active Substance: DULOXETINE HYDROCHLORIDE
     Dosage: 30 MG, QD
     Route: 048
     Dates: start: 20120318
  2. THYROID [Concomitant]
     Active Substance: LEVOTHYROXINE\LIOTHYRONINE
     Dosage: 60 MG, QD
     Route: 048
  3. CYMBALTA [Suspect]
     Active Substance: DULOXETINE HYDROCHLORIDE
     Indication: ANXIETY
     Dosage: 30 MG, QD
     Route: 048
     Dates: start: 2006
  4. THYROID [Concomitant]
     Active Substance: LEVOTHYROXINE\LIOTHYRONINE
     Dosage: 30 MG, QD
     Route: 048
  5. CYMBALTA [Suspect]
     Active Substance: DULOXETINE HYDROCHLORIDE
     Indication: DEPRESSION
     Dosage: 60 MG, QD
     Route: 048

REACTIONS (19)
  - Paraesthesia [Not Recovered/Not Resolved]
  - Anxiety [Unknown]
  - Muscle spasms [Not Recovered/Not Resolved]
  - Hot flush [Unknown]
  - Abdominal pain upper [Unknown]
  - Conjunctivitis [Unknown]
  - Nervous system disorder [Unknown]
  - Drug withdrawal syndrome [Not Recovered/Not Resolved]
  - Skin irritation [Unknown]
  - Formication [Unknown]
  - Amnesia [Unknown]
  - Gastrointestinal disorder [Unknown]
  - Fear [Unknown]
  - Insomnia [Unknown]
  - Nausea [Unknown]
  - Suicidal ideation [Unknown]
  - Weight increased [Unknown]
  - Weight decreased [Unknown]
  - Chills [Unknown]
